FAERS Safety Report 13100753 (Version 4)
Quarter: 2018Q1

REPORT INFORMATION
  Report Type: Spontaneous
  Country: DK (occurrence: DK)
  Receive Date: 20170110
  Receipt Date: 20180118
  Transmission Date: 20180508
  Serious: Yes (Hospitalization)
  Sender: FDA-Public Use
  Company Number: DK-SA-2017SA002170

PATIENT
  Sex: Female
  Weight: 4.18 kg

DRUGS (6)
  1. LANTUS [Suspect]
     Active Substance: INSULIN GLARGINE
     Indication: MATERNAL EXPOSURE TIMING UNSPECIFIED
     Dosage: 50 IE, QD
     Route: 063
     Dates: start: 20161209, end: 20170911
  2. NOVORAPID [Suspect]
     Active Substance: INSULIN ASPART
     Indication: MATERNAL EXPOSURE TIMING UNSPECIFIED
     Dosage: 40 IE, QD
     Route: 064
     Dates: start: 20160409, end: 20161209
  3. NOVORAPID [Suspect]
     Active Substance: INSULIN ASPART
     Indication: MATERNAL EXPOSURE TIMING UNSPECIFIED
     Dosage: 40 IE, QD
     Route: 063
     Dates: start: 20161209, end: 20170911
  4. TRESIBA [Suspect]
     Active Substance: INSULIN DEGLUDEC
     Indication: MATERNAL EXPOSURE TIMING UNSPECIFIED
     Dosage: 46 IE, QD. STYRKE UKENDT
     Route: 064
     Dates: start: 20160409, end: 20160526
  5. FOLIC ACID. [Concomitant]
     Active Substance: FOLIC ACID
     Dosage: UNK
     Dates: start: 20160409
  6. LANTUS [Suspect]
     Active Substance: INSULIN GLARGINE
     Indication: MATERNAL EXPOSURE TIMING UNSPECIFIED
     Dosage: 50 IE, QD
     Route: 064
     Dates: start: 20160526, end: 20161209

REACTIONS (4)
  - Premature baby [Unknown]
  - Foetal exposure during pregnancy [Unknown]
  - Exposure via breast milk [Unknown]
  - Hypoglycaemia neonatal [Recovered/Resolved]

NARRATIVE: CASE EVENT DATE: 20160526
